FAERS Safety Report 5372164-7 (Version None)
Quarter: 2007Q2

REPORT INFORMATION
  Report Type: 
  Country: None (occurrence: None)
  Receive Date: 20070615
  Receipt Date: 20070308
  Transmission Date: 20071010
  Serious: Yes (Other)
  Sender: FDA-Public Use
  Company Number: 200619968US

PATIENT
  Age: 74 Year
  Sex: Female

DRUGS (7)
  1. LANTUS [Suspect]
     Indication: DIABETES MELLITUS INSULIN-DEPENDENT
     Dosage: 15 U
  2. LANTUS [Suspect]
     Indication: DIABETES MELLITUS INSULIN-DEPENDENT
  3. COUMADIN [Concomitant]
  4. ATORVASTATIN CALCIUM             (LIPITOR) [Concomitant]
  5. SYNTHROID [Concomitant]
  6. METOPROLOL SUCCINATE          (TOPROL) [Concomitant]
  7. HUMALOG [Concomitant]

REACTIONS (2)
  - DRUG INEFFECTIVE [None]
  - HYPERGLYCAEMIA [None]
